FAERS Safety Report 7655977-8 (Version None)
Quarter: 2011Q3

REPORT INFORMATION
  Report Type: 
  Country: None (occurrence: None)
  Receive Date: 20110804
  Receipt Date: 20110725
  Transmission Date: 20111222
  Serious: Yes (Life-Threatening)
  Sender: FDA-Public Use
  Company Number: JP-ROCHE-788036

PATIENT
  Sex: Male
  Weight: 56 kg

DRUGS (15)
  1. RESTAMIN [Concomitant]
     Route: 048
     Dates: start: 20110107, end: 20110107
  2. AVASTIN [Suspect]
     Route: 041
     Dates: start: 20110107, end: 20110107
  3. PACLITAXEL [Suspect]
     Route: 041
     Dates: start: 20110107, end: 20110107
  4. RESTAMIN [Concomitant]
     Route: 048
     Dates: start: 20101205, end: 20101205
  5. FAMOTIDINE [Concomitant]
     Route: 041
     Dates: start: 20110107, end: 20110107
  6. KYTRIL [Concomitant]
     Route: 041
     Dates: start: 20110107, end: 20110107
  7. DEXAMETHASONE SODIUM PHOSPHATE [Suspect]
     Route: 041
     Dates: start: 20110107, end: 20110107
  8. FAMOTIDINE [Concomitant]
     Route: 041
     Dates: start: 20101205, end: 20101205
  9. MUCOSTA [Concomitant]
     Route: 048
     Dates: start: 20101229
  10. PACLITAXEL [Suspect]
     Indication: LUNG ADENOCARCINOMA
     Route: 041
     Dates: start: 20101215, end: 20101215
  11. AVASTIN [Suspect]
     Indication: LUNG ADENOCARCINOMA
     Route: 041
     Dates: start: 20101215, end: 20101215
  12. CARBOPLATIN [Suspect]
     Indication: LUNG ADENOCARCINOMA
     Route: 041
     Dates: start: 20101215, end: 20101215
  13. DEXAMETHASONE SODIUM PHOSPHATE [Suspect]
     Indication: PROPHYLAXIS OF NAUSEA AND VOMITING
     Route: 041
     Dates: start: 20101205, end: 20101205
  14. KYTRIL [Concomitant]
     Route: 041
     Dates: start: 20101205, end: 20101205
  15. CANDESARTAN CILEXETIL [Concomitant]
     Route: 048
     Dates: start: 20101218, end: 20110208

REACTIONS (5)
  - INSOMNIA [None]
  - CONSTIPATION [None]
  - ARTHRALGIA [None]
  - HICCUPS [None]
  - AORTIC DISSECTION [None]
